FAERS Safety Report 14014618 (Version 2)
Quarter: 2018Q3

REPORT INFORMATION
  Report Type: Spontaneous
  Country: JP (occurrence: JP)
  Receive Date: 20170927
  Receipt Date: 20180830
  Transmission Date: 20181010
  Serious: Yes (Death, Hospitalization)
  Sender: FDA-Public Use
  Company Number: JP-ABBVIE-17K-087-2114071-00

PATIENT
  Age: 86 Year
  Sex: Female

DRUGS (17)
  1. HUMIRA [Suspect]
     Active Substance: ADALIMUMAB
     Indication: PRODUCT USED FOR UNKNOWN INDICATION
     Dosage: 1ST ADMINISTRATION
     Route: 058
     Dates: start: 20100724, end: 20100724
  2. SULFAMETHOXAZOLE AND TRIMETHOPRIM [Concomitant]
     Active Substance: SULFAMETHOXAZOLE\TRIMETHOPRIM
     Route: 048
     Dates: start: 20101005, end: 20101019
  3. CEFTRIAXONE SODIUM HYDRATE [Concomitant]
     Active Substance: CEFTRIAXONE SODIUM
     Route: 042
     Dates: start: 20101019, end: 20101019
  4. HUMIRA [Suspect]
     Active Substance: ADALIMUMAB
     Dosage: 3RD ADMINISTRATION
     Route: 058
     Dates: start: 20100824, end: 20100824
  5. FLUCONAZOLE. [Concomitant]
     Active Substance: FLUCONAZOLE
     Indication: PULMONARY MYCOSIS
     Route: 048
     Dates: start: 20101005, end: 20101016
  6. MICONAZOLE. [Concomitant]
     Active Substance: MICONAZOLE
     Route: 042
     Dates: start: 20100930, end: 20100930
  7. CEFTRIAXONE SODIUM HYDRATE [Concomitant]
     Active Substance: CEFTRIAXONE SODIUM
     Indication: PNEUMONIA
     Route: 042
     Dates: start: 20101018, end: 20101018
  8. METHOTREXATE. [Concomitant]
     Active Substance: METHOTREXATE
     Indication: RHEUMATOID ARTHRITIS
     Dosage: UNIT DOSE: 1 TO 2 TABLETS
     Route: 048
     Dates: start: 20100724, end: 20101001
  9. SULFAMETHOXAZOLE AND TRIMETHOPRIM [Concomitant]
     Active Substance: SULFAMETHOXAZOLE\TRIMETHOPRIM
     Indication: PNEUMONIA
     Dosage: DAILY DOSE: 6 TO 9 TABLETS?UNIT DOSE: 2 TO 3 TABLETS
     Route: 048
     Dates: start: 20100925, end: 20101004
  10. FLUCONAZOLE. [Concomitant]
     Active Substance: FLUCONAZOLE
     Route: 048
     Dates: start: 20101017, end: 20101019
  11. MICONAZOLE. [Concomitant]
     Active Substance: MICONAZOLE
     Indication: PULMONARY MYCOSIS
     Route: 042
     Dates: start: 20100929, end: 20100929
  12. ISEPAMICIN SULFATE [Concomitant]
     Indication: PNEUMONIA
     Route: 030
     Dates: start: 20101016, end: 20101018
  13. HUMAN NORMAL IMMUNOGLOBULIN [Concomitant]
     Active Substance: HUMAN IMMUNOGLOBULIN G
     Indication: PNEUMONIA
     Route: 042
     Dates: start: 20101018, end: 20101018
  14. HUMIRA [Suspect]
     Active Substance: ADALIMUMAB
     Dosage: 2ND ADMINISTRATION
     Route: 058
     Dates: start: 20100810, end: 20100810
  15. HUMIRA [Suspect]
     Active Substance: ADALIMUMAB
     Dosage: 4TH ADMINISTRATION
     Route: 058
     Dates: start: 20100910, end: 20100910
  16. ETODOLAC. [Concomitant]
     Active Substance: ETODOLAC
     Indication: RHEUMATOID ARTHRITIS
     Route: 048
     Dates: start: 20100724, end: 20101007
  17. ISONIAZID. [Concomitant]
     Active Substance: ISONIAZID
     Indication: ANTIBIOTIC PROPHYLAXIS
     Route: 048
     Dates: start: 20100724, end: 20101007

REACTIONS (1)
  - Interstitial lung disease [Fatal]

NARRATIVE: CASE EVENT DATE: 20100924
